FAERS Safety Report 5088565-0 (Version None)
Quarter: 2006Q3

REPORT INFORMATION
  Report Type: 
  Country: None (occurrence: None)
  Receive Date: 20060801
  Receipt Date: 20060523
  Transmission Date: 20061208
  Serious: Yes (Life-Threatening, Hospitalization)
  Sender: FDA-Public Use
  Company Number: OMPQ-PR-0605S-0339

PATIENT
  Age: 56 Year
  Sex: Male

DRUGS (4)
  1. OMNIPAQUE 240 [Suspect]
     Indication: MASS
     Dosage: 100 ML, SINGLE, DOSE, I.V.
     Route: 042
     Dates: start: 20060411, end: 20060411
  2. COUMADIN [Concomitant]
  3. WELLBUTRIN [Concomitant]
  4. NICOTINE [Concomitant]

REACTIONS (1)
  - ANAPHYLACTOID SHOCK [None]
